FAERS Safety Report 25727421 (Version 3)
Quarter: 2025Q4

REPORT INFORMATION
  Report Type: Report from Study
  Country: CA (occurrence: CA)
  Receive Date: 20250826
  Receipt Date: 20251117
  Transmission Date: 20260118
  Serious: Yes (Hospitalization, Other)
  Sender: ABBVIE
  Company Number: CA-ABBVIE-6429064

PATIENT
  Age: 69 Year
  Sex: Female

DRUGS (39)
  1. RINVOQ [Suspect]
     Active Substance: UPADACITINIB
     Indication: Rheumatoid arthritis
     Dosage: FORM STRENGTH: 15 MG
     Route: 048
     Dates: end: 2025
  2. RINVOQ [Suspect]
     Active Substance: UPADACITINIB
     Indication: Rheumatoid arthritis
     Dosage: FORM STRENGTH: 15 MG
     Route: 048
     Dates: start: 20250817, end: 20250822
  3. METHOTREXATE [Concomitant]
     Active Substance: METHOTREXATE
     Indication: Product used for unknown indication
  4. CYCLOBENZAPRINE HYDROCHLORIDE [Concomitant]
     Active Substance: CYCLOBENZAPRINE HYDROCHLORIDE
     Indication: Product used for unknown indication
     Dosage: (CYCLOBENZAPRINE - 10 MG TAB) 5 MG PO 1000,1400 SCH
     Route: 048
  5. CYCLOBENZAPRINE HYDROCHLORIDE [Concomitant]
     Active Substance: CYCLOBENZAPRINE HYDROCHLORIDE
     Indication: Product used for unknown indication
     Dosage: (CYCLOBENZAPRINE - 10 MG TAB) 10 MG PO HS SCH
     Route: 048
  6. ENOXAPARIN SODIUM [Concomitant]
     Active Substance: ENOXAPARIN SODIUM
     Indication: Product used for unknown indication
     Dosage: (ENOXAPARIN - 40 MG/0.4 ML PFS) 40 MG SUBCUT DAILY SCH
     Route: 058
  7. ESTROGENS, CONJUGATED [Concomitant]
     Active Substance: ESTROGENS, CONJUGATED
     Indication: Product used for unknown indication
     Dosage: (ESTROGENS, CONJUGATED - 0.3 MG TAB) 0.3 MG PO DAILY SCH
     Route: 048
  8. ROCEPHIN [Concomitant]
     Active Substance: CEFTRIAXONE SODIUM
     Indication: Product used for unknown indication
     Dosage: CEFTRIAXONE SODIUM/DEXTROSE(ROCEPHIN 2,000 MG/50 M1 D5W) 2,000 MG IN 50 MLS @ 160 MLS/HR IV DAILY...
     Route: 042
  9. VANCOMYCIN HYDROCHLORIDE [Concomitant]
     Active Substance: VANCOMYCIN HYDROCHLORIDE
     Indication: Product used for unknown indication
     Dosage: VANCOMYCIN HCL 1000 MG/(DEXTROSE/WATER) 260 MLS @ 260 MIS/HR IV 0600, 1800 SCH
     Route: 042
  10. HYDROMORPHONE HCL [Concomitant]
     Active Substance: HYDROMORPHONE HYDROCHLORIDE
     Indication: Pain management
     Dosage: (HYDROMORPHONE - 1 MG TAB) 0 MG PO Q3H PRN
     Route: 048
  11. HYDROMORPHONE HCL [Concomitant]
     Active Substance: HYDROMORPHONE HYDROCHLORIDE
     Indication: Pain management
     Dosage: (HYDROMORPHONE[PRESFREE] 2 MG/ML INJ; 1 ML VIAL) 0 MG IV Q3H PRN
     Route: 042
  12. HYDROMORPHONE HCL [Concomitant]
     Active Substance: HYDROMORPHONE HYDROCHLORIDE
     Indication: Pain management
     Dosage: (HYDROMORPHONE 1 MG TAB} 1 MG PO.30 TO 60 MINS PRIOR TO PT PRN
     Route: 048
  13. ONDANSETRON HYDROCHLORIDE [Concomitant]
     Active Substance: ONDANSETRON HYDROCHLORIDE
     Indication: Product used for unknown indication
     Dosage: (ONDANSETRON - 4 MG TAB) 4 MG PO Q8H PRN
     Route: 048
  14. ONDANSETRON HYDROCHLORIDE [Concomitant]
     Active Substance: ONDANSETRON HYDROCHLORIDE
     Indication: Product used for unknown indication
     Dosage: (ONDANSETRON 2 MG/ML INJ; 2 ML AMP) 4 MG IV Q8H PRN
     Route: 042
  15. LACTULOSE [Concomitant]
     Active Substance: LACTULOSE
     Indication: Product used for unknown indication
     Dosage: {LACTULOSE 667 MG/ML LIG; 500 ML BTL) 0 ML PO BID PRN
     Route: 048
  16. SENNOSIDES [Concomitant]
     Active Substance: SENNOSIDES
     Indication: Product used for unknown indication
     Dosage: (SENNOSIDES - 12 MG TAB) 0 MG PO DAILY
     Route: 048
  17. ZOPICLONE [Concomitant]
     Active Substance: ZOPICLONE
     Indication: Product used for unknown indication
     Dosage: (ZOPICLONE - 7.5 MG TAB) 0 MG PO HS PRN
     Route: 048
  18. BISACODYL [Concomitant]
     Active Substance: BISACODYL
     Indication: Product used for unknown indication
     Dosage: TIME INTERVAL: AS NECESSARY: (BISACODYL - 10 MG SUPP) 10 MG RECTAL PRN
     Route: 054
  19. SYMBICORT [Concomitant]
     Active Substance: BUDESONIDE\FORMOTEROL FUMARATE DIHYDRATE
     Indication: Product used for unknown indication
     Dosage: (SYMBICORT - 200:6 MCG MDI; 60 PUFF MDI) 0 PUFF INH QID PRN
  20. DIMENHYDRINATE [Concomitant]
     Active Substance: DIMENHYDRINATE
     Indication: Product used for unknown indication
     Dosage: (DIMENHYDRINATE - 50 MG TAB) 0 MG PO Q6H PRN
     Route: 048
  21. DIMENHYDRINATE [Concomitant]
     Active Substance: DIMENHYDRINATE
     Indication: Product used for unknown indication
     Dosage: (DIMENHYDRINATE 50 MG/ML INJ; 1 ML AMP) 0 MG IV Q6H PRN
     Route: 042
  22. DOCUSATE SODIUM [Concomitant]
     Active Substance: DOCUSATE SODIUM
     Indication: Product used for unknown indication
     Dosage: (DOCUSATE - 100 MG CAP) 100 MG PO BID PRN
     Route: 048
  23. IPRATROPIUM BROMIDE [Concomitant]
     Active Substance: IPRATROPIUM BROMIDE
     Indication: Product used for unknown indication
     Dosage: (IPRATROPIUM 20 MCG/PUFF MDI; 200 PUFF MDI 40 MCG INH QID SCH
  24. GUAIFENESIN [Concomitant]
     Active Substance: GUAIFENESIN
     Indication: Product used for unknown indication
     Dosage: (GUAIFENESIN - 20 MG/ML LIQ; 100 ML BTL) 200 MG PO Q6H PRN
     Route: 048
  25. ACETAMINOPHEN [Concomitant]
     Active Substance: ACETAMINOPHEN
     Indication: Product used for unknown indication
     Dosage: (ACETAMINOPHEN - 500 MG TAB) 1,000 MG PO QID SCH
     Route: 048
  26. AMLODIPINE BESYLATE [Concomitant]
     Active Substance: AMLODIPINE BESYLATE
     Indication: Product used for unknown indication
     Dosage: (AMLODIPINE - 5 MG TAB) 5 MG PO DAILY SCH
     Route: 048
  27. ATORVASTATIN CALCIUM [Concomitant]
     Active Substance: ATORVASTATIN CALCIUM
     Indication: Product used for unknown indication
     Dosage: DOSAGE: 20 MG (ATORVASTATIN 20 MG TAB) 20 MG PO QPM SCH
     Route: 048
  28. BUPROPION HYDROCHLORIDE [Concomitant]
     Active Substance: BUPROPION HYDROCHLORIDE
     Indication: Product used for unknown indication
     Dosage: (BUPROPION XL- 300 MG TAB) 300 MG PO DAILY SCH
     Route: 048
  29. LEUCOVORIN CALCIUM [Concomitant]
     Active Substance: LEUCOVORIN CALCIUM
     Indication: Product used for unknown indication
     Dosage: (LEUCOVORIN - 5 MG TAB) 5 MG PO Q7D@1000 SCH
     Route: 048
  30. MELOXICAM [Concomitant]
     Active Substance: MELOXICAM
     Indication: Product used for unknown indication
     Dosage: (MELOXICAM 7.5 MG TAB) 15 MG PO DAILY SCH
     Route: 048
  31. PANTOPRAZOLE [Concomitant]
     Active Substance: PANTOPRAZOLE
     Indication: Product used for unknown indication
     Dosage: (PANTOPRAZOLE - 40 MG TAB) 40 MG PO DAILY SCH
     Route: 048
  32. POLYETHYLENE GLYCOL [Concomitant]
     Active Substance: POLYETHYLENE GLYCOL
     Indication: Product used for unknown indication
     Dosage: (POLYETHYLENE GLYCOL 3350 PWD; 17 G PKG) 17 GM PO DAILY SCH
     Route: 048
  33. PREGABALIN [Concomitant]
     Active Substance: PREGABALIN
     Indication: Product used for unknown indication
     Dosage: (PREGABALIN 150 MG CAP) 150 MG PO BID SCH
     Route: 048
  34. PROGESTERONE [Concomitant]
     Active Substance: PROGESTERONE
     Indication: Product used for unknown indication
     Dosage: (PROGESTERONE MICRONIZED 100 MG CAP} 100 MG PO Q2D@2100 SCH
     Route: 048
  35. TYLENOL [Concomitant]
     Active Substance: ACETAMINOPHEN
     Indication: Product used for unknown indication
  36. ATROVENT [Concomitant]
     Active Substance: IPRATROPIUM BROMIDE
     Indication: Cough
  37. GABAPENTIN [Concomitant]
     Active Substance: GABAPENTIN
     Indication: Product used for unknown indication
  38. LYRICA [Concomitant]
     Active Substance: PREGABALIN
     Indication: Product used for unknown indication
  39. FLEXERIL [Concomitant]
     Active Substance: CYCLOBENZAPRINE HYDROCHLORIDE
     Indication: Product used for unknown indication

REACTIONS (16)
  - Spinal laminectomy [Not Recovered/Not Resolved]
  - Neuralgia [Recovered/Resolved]
  - Urinary retention [Not Recovered/Not Resolved]
  - Wound infection [Recovered/Resolved]
  - Incision site erythema [Recovering/Resolving]
  - Incision site discharge [Not Recovered/Not Resolved]
  - Spinal disorder [Unknown]
  - Extradural haematoma [Unknown]
  - C-reactive protein increased [Unknown]
  - Seroma [Unknown]
  - Cough [Unknown]
  - Paralysis [Unknown]
  - Pain [Unknown]
  - Nerve injury [Unknown]
  - Joint range of motion decreased [Unknown]
  - Spinal laminectomy [Recovering/Resolving]

NARRATIVE: CASE EVENT DATE: 20250101
